FAERS Safety Report 5444872-0 (Version None)
Quarter: 2007Q3

REPORT INFORMATION
  Report Type: 
  Country: None (occurrence: None)
  Receive Date: 20070906
  Receipt Date: 20070828
  Transmission Date: 20080115
  Serious: Yes (Other)
  Sender: FDA-Public Use
  Company Number: US-AMGEN-US240972

PATIENT
  Sex: Female

DRUGS (2)
  1. ENBREL [Suspect]
     Indication: RHEUMATOID ARTHRITIS
     Route: 058
     Dates: start: 20050601
  2. SULFASALAZINE [Concomitant]
     Route: 048
     Dates: start: 20070101

REACTIONS (2)
  - BLINDNESS [None]
  - HEPATIC STEATOSIS [None]
